FAERS Safety Report 4617441-X (Version None)
Quarter: 2005Q1

REPORT INFORMATION
  Report Type: 
  Country: None (occurrence: None)
  Receive Date: 20050318
  Receipt Date: 20050302
  Transmission Date: 20050727
  Serious: Yes (Hospitalization)
  Sender: FDA-Public Use
  Company Number: 2005-FF-00142FF

PATIENT
  Age: 61 Year
  Sex: Female

DRUGS (4)
  1. CLONIDINE [Suspect]
     Dosage: PO
     Route: 048
     Dates: end: 20050214
  2. LEVOTHYROX (LEVOTHYROXINE SODIUM) NR) [Concomitant]
  3. DOXYCYLCINE (NR) [Concomitant]
  4. ARIMIDEX (NR) [Concomitant]

REACTIONS (2)
  - CONDITION AGGRAVATED [None]
  - THROMBOCYTOPENIA [None]
